FAERS Safety Report 7506180-3 (Version None)
Quarter: 2011Q2

REPORT INFORMATION
  Report Type: 
  Country: None (occurrence: None)
  Receive Date: 20110526
  Receipt Date: 20110519
  Transmission Date: 20111010
  Serious: No
  Sender: FDA-Public Use
  Company Number: US-PFIZER INC-2011109780

PATIENT
  Sex: Female

DRUGS (1)
  1. XALATAN [Suspect]
     Indication: INTRAOCULAR PRESSURE INCREASED
     Dosage: ONE DROP IN EACH EYE EVERY NIGHT
     Route: 047
     Dates: start: 20090801

REACTIONS (3)
  - EYE DISORDER [None]
  - OCULAR HYPERAEMIA [None]
  - EYE PAIN [None]
